FAERS Safety Report 9698999 (Version 1)
Quarter: 2013Q4

REPORT INFORMATION
  Report Type: Spontaneous
  Country: US (occurrence: US)
  Receive Date: 20131120
  Receipt Date: 20131120
  Transmission Date: 20140711
  Serious: Yes (Other)
  Sender: FDA-Public Use
  Company Number: US-PERRIGO-13US011673

PATIENT
  Age: 73 Year
  Sex: Male

DRUGS (5)
  1. NAPROXEN SODIUM 220 MG 368 [Suspect]
     Indication: ARTHRALGIA
     Dosage: UNKNOWN, UNKNOWN
     Route: 065
  2. FELDENE [Suspect]
     Indication: BACK PAIN
     Dosage: UNKNOWN, UNKNOWN
     Route: 065
  3. ASPIRIN [Concomitant]
     Indication: PRODUCT USED FOR UNKNOWN INDICATION
     Dosage: UNKNOWN, UNKNOWN
     Route: 048
  4. FUROSEMIDE [Concomitant]
     Indication: PRODUCT USED FOR UNKNOWN INDICATION
     Dosage: UNKNOWN, UNKNOWN
     Route: 048
  5. ATORVASTATIN [Concomitant]
     Indication: PRODUCT USED FOR UNKNOWN INDICATION
     Dosage: UNKNOWN, UNKNOWN
     Route: 048

REACTIONS (2)
  - Nephrotic syndrome [Unknown]
  - Glomerulonephritis membranous [Unknown]
